FAERS Safety Report 8389946-X (Version None)
Quarter: 2012Q2

REPORT INFORMATION
  Report Type: 
  Country: None (occurrence: None)
  Receive Date: 20120529
  Receipt Date: 20120525
  Transmission Date: 20120825
  Serious: No
  Sender: FDA-Public Use
  Company Number: US-PFIZER INC-2012127269

PATIENT
  Sex: Male

DRUGS (2)
  1. AVINZA [Suspect]
     Dosage: 90 MG, 2X/DAY
     Route: 048
  2. AVINZA [Suspect]
     Indication: PAIN
     Dosage: 90 MG, 2X/DAY

REACTIONS (4)
  - NAUSEA [None]
  - VOMITING [None]
  - WITHDRAWAL SYNDROME [None]
  - DIARRHOEA [None]
